FAERS Safety Report 5932273-8 (Version None)
Quarter: 2008Q4

REPORT INFORMATION
  Report Type: 
  Country: None (occurrence: None)
  Receive Date: 20081023
  Receipt Date: 20081015
  Transmission Date: 20090506
  Serious: Yes (Other)
  Sender: FDA-Public Use
  Company Number: 2008AP000635

PATIENT
  Age: 36 Year
  Sex: Female

DRUGS (30)
  1. PAROXETINE HCL [Suspect]
     Dosage: 20 MG; QD PO; 60 MG; PO; QD; 25 MG; PO; QD; 45 MG; PO; QD; 10 MG; ORAL_LIQ;PO;QD; 20 MG; TAB; PO; QD
     Route: 048
     Dates: start: 19970801, end: 20030901
  2. PAROXETINE HCL [Suspect]
     Dosage: 20 MG; QD PO; 60 MG; PO; QD; 25 MG; PO; QD; 45 MG; PO; QD; 10 MG; ORAL_LIQ;PO;QD; 20 MG; TAB; PO; QD
     Route: 048
     Dates: end: 20031001
  3. PAROXETINE HCL [Suspect]
     Dosage: 20 MG; QD PO; 60 MG; PO; QD; 25 MG; PO; QD; 45 MG; PO; QD; 10 MG; ORAL_LIQ;PO;QD; 20 MG; TAB; PO; QD
     Route: 048
     Dates: start: 20030901
  4. PAROXETINE HCL [Suspect]
     Dosage: 20 MG; QD PO; 60 MG; PO; QD; 25 MG; PO; QD; 45 MG; PO; QD; 10 MG; ORAL_LIQ;PO;QD; 20 MG; TAB; PO; QD
     Route: 048
     Dates: start: 20031001
  5. PAROXETINE HCL [Suspect]
     Dosage: 20 MG; QD PO; 60 MG; PO; QD; 25 MG; PO; QD; 45 MG; PO; QD; 10 MG; ORAL_LIQ;PO;QD; 20 MG; TAB; PO; QD
     Route: 048
     Dates: start: 20031001
  6. PAROXETINE HCL [Suspect]
     Dosage: 20 MG; QD PO; 60 MG; PO; QD; 25 MG; PO; QD; 45 MG; PO; QD; 10 MG; ORAL_LIQ;PO;QD; 20 MG; TAB; PO; QD
     Route: 048
     Dates: start: 20050407
  7. LORAZEPAM [Concomitant]
  8. FLUOXETINE HCL [Concomitant]
  9. DAPSONE [Concomitant]
  10. TRIAMCINOLONE [Concomitant]
  11. INSULIN (INSULIN) [Concomitant]
  12. BETA BLOCKING AGENTS (BETA BLOCKING AGENTS) [Concomitant]
  13. . [Concomitant]
  14. . [Concomitant]
  15. . [Concomitant]
  16. . [Concomitant]
  17. . [Concomitant]
  18. . [Concomitant]
  19. . [Concomitant]
  20. . [Concomitant]
  21. . [Concomitant]
  22. . [Concomitant]
  23. . [Concomitant]
  24. . [Concomitant]
  25. . [Concomitant]
  26. . [Concomitant]
  27. . [Concomitant]
  28. . [Concomitant]
  29. . [Concomitant]
  30. . [Concomitant]

REACTIONS (54)
  - AGGRESSION [None]
  - ALOPECIA AREATA [None]
  - ALTERED VISUAL DEPTH PERCEPTION [None]
  - ANAEMIA [None]
  - ANGER [None]
  - AUTONOMIC NEUROPATHY [None]
  - BACK PAIN [None]
  - BEHCET'S SYNDROME [None]
  - BIPOLAR DISORDER [None]
  - BORDERLINE PERSONALITY DISORDER [None]
  - COELIAC DISEASE [None]
  - CONFUSIONAL STATE [None]
  - CRYING [None]
  - DEPRESSION [None]
  - DERMATITIS HERPETIFORMIS [None]
  - DIABETES MELLITUS INADEQUATE CONTROL [None]
  - DIABETIC COMPLICATION [None]
  - DIABETIC RETINOPATHY [None]
  - DISTURBANCE IN ATTENTION [None]
  - EMOTIONAL DISORDER [None]
  - FLAT AFFECT [None]
  - HYPOGLYCAEMIA [None]
  - INDIFFERENCE [None]
  - INFLUENZA [None]
  - INTENTIONAL SELF-INJURY [None]
  - IRRITABLE BOWEL SYNDROME [None]
  - LETHARGY [None]
  - LOSS OF LIBIDO [None]
  - MEMORY IMPAIRMENT [None]
  - MENSTRUAL DISORDER [None]
  - MENTAL DISORDER [None]
  - MOOD SWINGS [None]
  - MUSCLE SPASMS [None]
  - NIGHTMARE [None]
  - OVERDOSE [None]
  - PALPITATIONS [None]
  - PANIC ATTACK [None]
  - PANIC REACTION [None]
  - PARANOIA [None]
  - PERSONALITY CHANGE [None]
  - PRURITUS [None]
  - SCAR [None]
  - SELF INJURIOUS BEHAVIOUR [None]
  - SKIN INFECTION [None]
  - SLEEP DISORDER [None]
  - SOCIAL PROBLEM [None]
  - SOMNOLENCE [None]
  - STRESS [None]
  - SUICIDAL IDEATION [None]
  - TENSION HEADACHE [None]
  - TRIGGER FINGER [None]
  - VISUAL IMPAIRMENT [None]
  - WEIGHT DECREASED [None]
  - WITHDRAWAL SYNDROME [None]
